FAERS Safety Report 4904759-6 (Version None)
Quarter: 2006Q1

REPORT INFORMATION
  Report Type: 
  Country: None (occurrence: None)
  Receive Date: 20060203
  Receipt Date: 20060127
  Transmission Date: 20060701
  Serious: Yes (Death)
  Sender: FDA-Public Use
  Company Number: ENTC2006-0023

PATIENT
  Age: 73 Year
  Sex: Female

DRUGS (5)
  1. STALEVO 100 [Suspect]
     Indication: PARKINSON'S DISEASE
     Dosage: 200 MG (100 MG, 2 IN 1 D) ORAL
     Route: 048
     Dates: start: 20060111
  2. SIFROL [Concomitant]
  3. CARBIDOPA AND LEVODOPA [Concomitant]
  4. PROPRANOLOL [Concomitant]
  5. SERTRALINE [Concomitant]

REACTIONS (8)
  - CARDIOPULMONARY FAILURE [None]
  - CONDITION AGGRAVATED [None]
  - CORONARY ARTERY INSUFFICIENCY [None]
  - INFECTION [None]
  - PARKINSON'S DISEASE [None]
  - PYREXIA [None]
  - SENILE DEMENTIA [None]
  - SUDDEN DEATH [None]
